FAERS Safety Report 14342137 (Version 1)
Quarter: 2018Q1

REPORT INFORMATION
  Report Type: Spontaneous
  Country: US (occurrence: US)
  Receive Date: 20180102
  Receipt Date: 20180102
  Transmission Date: 20180509
  Serious: No
  Sender: FDA-Public Use
  Company Number: US-TEVA-736133ACC

PATIENT
  Sex: Female
  Weight: 74.91 kg

DRUGS (1)
  1. MINOXIDIL TSOL MN [Suspect]
     Active Substance: MINOXIDIL
     Indication: ALOPECIA
     Dates: start: 201603, end: 2016

REACTIONS (3)
  - Pruritus [Unknown]
  - Scab [Unknown]
  - Feeling abnormal [Unknown]
